FAERS Safety Report 19088426 (Version 3)
Quarter: 2022Q1

REPORT INFORMATION
  Report Type: Report from Study
  Country: US (occurrence: US)
  Receive Date: 20210402
  Receipt Date: 20220113
  Transmission Date: 20220424
  Serious: No
  Sender: FDA-Public Use
  Company Number: NVSC2021US075699

PATIENT
  Age: 62 Year
  Sex: Male

DRUGS (1)
  1. ENTRESTO [Suspect]
     Active Substance: SACUBITRIL\VALSARTAN
     Indication: Cardiac failure
     Dosage: 50 MG, BID (24/26MG)
     Route: 048
     Dates: start: 20210329

REACTIONS (3)
  - Abdominal pain upper [Unknown]
  - Weight abnormal [Unknown]
  - Cough [Unknown]

NARRATIVE: CASE EVENT DATE: 20210330
